FAERS Safety Report 10662781 (Version 2)
Quarter: 2015Q1

REPORT INFORMATION
  Report Type: Spontaneous
  Country: FR (occurrence: FR)
  Receive Date: 20141218
  Receipt Date: 20150224
  Transmission Date: 20150720
  Serious: Yes (Disabling, Other)
  Sender: FDA-Public Use
  Company Number: FR-ACORDA-ACO_107561_2014

PATIENT
  Sex: Male

DRUGS (3)
  1. QUTENZA [Suspect]
     Active Substance: CAPSAICIN
     Indication: PAIN
     Dosage: 1 DF, UNK
     Route: 062
     Dates: start: 20141030, end: 20141030
  2. QUTENZA [Suspect]
     Active Substance: CAPSAICIN
     Dosage: 2 UNK, UNK
     Route: 062
     Dates: start: 2014, end: 2014
  3. QUTENZA [Suspect]
     Active Substance: CAPSAICIN
     Indication: BACK PAIN
     Dosage: 2 UNK, UNK
     Route: 062
     Dates: start: 2014, end: 2014

REACTIONS (1)
  - Burns second degree [Recovered/Resolved]

NARRATIVE: CASE EVENT DATE: 20141030
